FAERS Safety Report 11526820 (Version 1)
Quarter: 2015Q3

REPORT INFORMATION
  Report Type: Spontaneous
  Country: US (occurrence: US)
  Receive Date: 20150903
  Receipt Date: 20150903
  Transmission Date: 20151125
  Serious: Yes (Other)
  Sender: FDA-Public Use
  Company Number: US-ELI_LILLY_AND_COMPANY-US201311005798

PATIENT
  Sex: Female

DRUGS (3)
  1. CYMBALTA [Suspect]
     Active Substance: DULOXETINE HYDROCHLORIDE
     Indication: DEPRESSION
     Route: 065
  2. LORAZEPAM. [Suspect]
     Active Substance: LORAZEPAM
     Indication: ANXIETY
     Route: 065
  3. NEURONTIN [Suspect]
     Active Substance: GABAPENTIN
     Indication: PRODUCT USED FOR UNKNOWN INDICATION
     Route: 065

REACTIONS (12)
  - Seizure [Unknown]
  - Diplopia [Unknown]
  - Fatigue [Unknown]
  - Somnolence [Unknown]
  - Malaise [Unknown]
  - Coordination abnormal [Unknown]
  - Tremor [Unknown]
  - Pyrexia [Unknown]
  - Infection [Unknown]
  - Rectal haemorrhage [Unknown]
  - Amnesia [Unknown]
  - Mental impairment [Unknown]
